FAERS Safety Report 25200607 (Version 1)
Quarter: 2025Q2

REPORT INFORMATION
  Report Type: Spontaneous
  Country: CA (occurrence: CA)
  Receive Date: 20250415
  Receipt Date: 20250415
  Transmission Date: 20250716
  Serious: Yes (Hospitalization, Other)
  Sender: TEVA
  Company Number: CA-TEVA-VS-3321948

PATIENT
  Age: 57 Year
  Sex: Female

DRUGS (4)
  1. ESOMEPRAZOLE [Suspect]
     Active Substance: ESOMEPRAZOLE
     Indication: Product used for unknown indication
     Route: 065
  2. LANSOPRAZOLE [Concomitant]
     Active Substance: LANSOPRAZOLE
     Indication: Product used for unknown indication
     Route: 065
  3. WELIREG [Suspect]
     Active Substance: BELZUTIFAN
     Indication: Von Hippel-Lindau disease
     Route: 065
  4. PANTOPRAZOLE SODIUM ANHYDROUS [Concomitant]
     Active Substance: PANTOPRAZOLE SODIUM ANHYDROUS
     Indication: Product used for unknown indication
     Route: 065

REACTIONS (6)
  - Anaemia [Recovered/Resolved]
  - Wound infection [Recovered/Resolved]
  - Hydrocephalus [Recovered/Resolved]
  - Drug interaction [Recovered/Resolved]
  - Fall [Recovered/Resolved]
  - Vascular graft occlusion [Recovered/Resolved]
